FAERS Safety Report 4801930-9 (Version None)
Quarter: 2005Q4

REPORT INFORMATION
  Report Type: 
  Country: None (occurrence: None)
  Receive Date: 20051012
  Receipt Date: 20050929
  Transmission Date: 20060501
  Serious: Yes (Other)
  Sender: FDA-Public Use
  Company Number: HQWYE806703OCT05

PATIENT
  Age: 59 Year
  Sex: Female
  Weight: 83.99 kg

DRUGS (5)
  1. ADVIL [Suspect]
     Indication: HEADACHE
     Dosage: 400 MG TIW, ORAL
     Route: 048
     Dates: start: 20050715, end: 20050812
  2. ADVIL [Suspect]
     Indication: MYALGIA
     Dosage: 400 MG TIW, ORAL
     Route: 048
     Dates: start: 20050715, end: 20050812
  3. PEG-INTRON [Suspect]
     Indication: HEPATITIS C
     Dosage: 120 MCG EVERY WEEK, SUBCUTANEOUS
     Route: 058
     Dates: start: 20050715
  4. RIBAVIRIN [Suspect]
     Indication: HEPATITIS C
     Dosage: 800 MG 1X PER 1 DAY, ORAL
     Route: 048
     Dates: start: 20050715
  5. TYLENOL [Concomitant]

REACTIONS (6)
  - GASTRIC ULCER [None]
  - GASTROINTESTINAL HAEMORRHAGE [None]
  - HAEMOGLOBIN DECREASED [None]
  - HYPOTENSION [None]
  - MELAENA [None]
  - SYNCOPE [None]
